FAERS Safety Report 6992593-5 (Version None)
Quarter: 2010Q3

REPORT INFORMATION
  Report Type: 
  Country: None (occurrence: None)
  Receive Date: 20100917
  Receipt Date: 20100909
  Transmission Date: 20110219
  Serious: Yes (Life-Threatening)
  Sender: FDA-Public Use
  Company Number: IT-TEVA-248047ISR

PATIENT
  Sex: Female

DRUGS (2)
  1. RIBAVIRIN [Suspect]
     Indication: CHRONIC HEPATITIS
     Route: 048
     Dates: start: 20100201, end: 20100813
  2. PEGINTERFERON ALFA-2A [Suspect]
     Indication: CHRONIC HEPATITIS
     Route: 058
     Dates: start: 20100201, end: 20100813

REACTIONS (3)
  - CACHEXIA [None]
  - PANCYTOPENIA [None]
  - RHABDOMYOLYSIS [None]
